FAERS Safety Report 7714650-8 (Version None)
Quarter: 2011Q3

REPORT INFORMATION
  Report Type: 
  Country: None (occurrence: None)
  Receive Date: 20110829
  Receipt Date: 20110815
  Transmission Date: 20111222
  Serious: Yes (Other)
  Sender: FDA-Public Use
  Company Number: US-UCBSA-039229

PATIENT
  Sex: Male

DRUGS (5)
  1. FUROSEMIDE [Concomitant]
  2. VIMPAT [Suspect]
     Indication: EPILEPSY
     Route: 048
     Dates: start: 20110101, end: 20110101
  3. CARBAMAZEPINE [Concomitant]
  4. METOPROLOL TARTRATE [Concomitant]
  5. ZONISAMIDE [Concomitant]

REACTIONS (1)
  - STEVENS-JOHNSON SYNDROME [None]
